FAERS Safety Report 9852241 (Version 2)
Quarter: 2014Q2

REPORT INFORMATION
  Report Type: Spontaneous
  Country: US (occurrence: None)
  Receive Date: 20140127
  Receipt Date: 20140404
  Transmission Date: 20141212
  Serious: Yes (Hospitalization)
  Sender: FDA-Public Use
  Company Number: 2014-US-000389

PATIENT
  Age: 37 Year
  Sex: Female

DRUGS (3)
  1. XYREM [Suspect]
     Indication: NARCOLEPSY
     Route: 048
     Dates: start: 201205, end: 2012
  2. XYREM [Suspect]
     Indication: HYPERSOMNIA
     Route: 048
     Dates: start: 201205, end: 2012
  3. TAXEDERA [Concomitant]

REACTIONS (5)
  - Bronchitis [None]
  - Multiple sclerosis relapse [None]
  - Gastroenteritis viral [None]
  - Hiccups [None]
  - Somnolence [None]
